FAERS Safety Report 21445975 (Version 4)
Quarter: 2022Q4

REPORT INFORMATION
  Report Type: Spontaneous
  Country: JP (occurrence: JP)
  Receive Date: 20221012
  Receipt Date: 20221206
  Transmission Date: 20230113
  Serious: Yes (Life-Threatening, Hospitalization)
  Sender: FDA-Public Use
  Company Number: JP-KYOWAKIRIN-2022AKK015493

PATIENT
  Sex: Female

DRUGS (2)
  1. PEGFILGRASTIM [Suspect]
     Active Substance: PEGFILGRASTIM
     Indication: Colony stimulating factor therapy
     Dosage: 3.6 MILLIGRAM
     Route: 058
     Dates: start: 20220927, end: 20220927
  2. PEGFILGRASTIM [Suspect]
     Active Substance: PEGFILGRASTIM
     Dosage: 3.6 MILLIGRAM
     Route: 058
     Dates: start: 20220928, end: 20220928

REACTIONS (1)
  - Drug ineffective [Recovered/Resolved]
